FAERS Safety Report 23179094 (Version 2)
Quarter: 2023Q4

REPORT INFORMATION
  Report Type: Report from Study
  Country: US (occurrence: US)
  Receive Date: 20231113
  Receipt Date: 20231127
  Transmission Date: 20240110
  Serious: Yes (Hospitalization)
  Sender: FDA-Public Use
  Company Number: US-JNJFOC-20231105202

PATIENT
  Age: 75 Year
  Sex: Male
  Weight: 78.8 kg

DRUGS (27)
  1. BORTEZOMIB [Suspect]
     Active Substance: BORTEZOMIB
     Indication: Plasma cell myeloma
     Dosage: 1.08 MILLILITER
     Route: 058
     Dates: start: 20230725, end: 20231006
  2. DEXAMETHASONE [Suspect]
     Active Substance: DEXAMETHASONE
     Indication: Plasma cell myeloma
     Dosage: 20 MILLIGRAM
     Route: 048
     Dates: start: 20230725, end: 20230915
  3. LENALIDOMIDE [Suspect]
     Active Substance: LENALIDOMIDE
     Indication: Plasma cell myeloma
     Dosage: 25 MILLIGRAM
     Route: 048
     Dates: start: 20230725, end: 20230918
  4. MESALAMINE [Concomitant]
     Active Substance: MESALAMINE
     Indication: Crohn^s disease
     Dosage: 1.2 GRAM, BID
     Route: 048
     Dates: start: 20010101
  5. VALSARTAN [Concomitant]
     Active Substance: VALSARTAN
     Indication: Hypertension
     Dosage: 160 MILLIGRAM, QD
     Route: 048
     Dates: start: 20080101
  6. AMLODIPINE [Concomitant]
     Active Substance: AMLODIPINE BESYLATE
     Indication: Hypertension
     Dosage: 10 MILLIGRAM, QD
     Route: 048
     Dates: start: 20080101, end: 20231020
  7. VITAMIN B12 [Concomitant]
     Active Substance: CYANOCOBALAMIN
     Indication: Routine health maintenance
     Dosage: 1000 MICROGRAM, QD
     Route: 048
     Dates: start: 20210101
  8. ASPIRIN [Concomitant]
     Active Substance: ASPIRIN
     Indication: Prophylaxis
     Dosage: 81 MILLIGRAM, QD
     Route: 048
     Dates: start: 20230713
  9. ACYCLOVIR [Concomitant]
     Active Substance: ACYCLOVIR
     Indication: Antiviral prophylaxis
     Dosage: 400 MILLIGRAM, BID
     Route: 048
     Dates: start: 20230725
  10. OYSTERCAL D [Concomitant]
     Indication: Prophylaxis
     Dosage: 500 MILLIGRAM, BID
     Route: 048
     Dates: start: 20230725
  11. ZOMETA [Concomitant]
     Active Substance: ZOLEDRONIC ACID
     Indication: Prophylaxis
     Dosage: 4 MILLIGRAM, MONTHLY
     Route: 042
     Dates: start: 20230725
  12. VALIUM [Concomitant]
     Active Substance: DIAZEPAM
     Indication: Muscle spasms
     Dosage: 5 MILLIGRAM
     Route: 048
     Dates: start: 20231014, end: 20231019
  13. BACLOFEN [Concomitant]
     Active Substance: BACLOFEN
     Indication: Muscle spasms
     Dosage: 10 MILLIGRAM, TID
     Route: 048
     Dates: start: 20231016, end: 20231030
  14. BACLOFEN [Concomitant]
     Active Substance: BACLOFEN
     Indication: Peripheral sensory neuropathy
     Dosage: 20 MILLIGRAM, TID
     Route: 048
     Dates: start: 20231030
  15. VITAMIN B6 [Concomitant]
     Active Substance: PYRIDOXINE HYDROCHLORIDE
     Indication: Muscle spasms
     Dosage: 50 MILLIGRAM, QD
     Route: 048
     Dates: start: 20231017, end: 20231017
  16. VITAMIN B6 [Concomitant]
     Active Substance: PYRIDOXINE HYDROCHLORIDE
     Indication: Peripheral sensory neuropathy
  17. GABAPENTIN [Concomitant]
     Active Substance: GABAPENTIN
     Indication: Muscle spasms
     Dosage: 300 MILLIGRAM, BID
     Route: 048
     Dates: start: 20231017, end: 20231020
  18. GABAPENTIN [Concomitant]
     Active Substance: GABAPENTIN
     Indication: Peripheral sensory neuropathy
     Dosage: 600 MILLIGRAM, BID
     Route: 048
     Dates: start: 20231020
  19. MAGNESIUM OXIDE [Concomitant]
     Active Substance: MAGNESIUM OXIDE
     Indication: Muscle spasms
     Dosage: 400 MILLIGRAM, QD
     Route: 048
     Dates: start: 20231017, end: 20231101
  20. OXYCODONE [Concomitant]
     Active Substance: OXYCODONE
     Indication: Muscle spasms
     Dosage: UNK
     Route: 048
     Dates: start: 20231020, end: 20231101
  21. DILTIAZEM [Concomitant]
     Active Substance: DILTIAZEM
     Indication: Hypertension
     Dosage: 30 MILLIGRAM, QD
     Route: 048
     Dates: start: 20231021
  22. OXYCONTIN [Concomitant]
     Active Substance: OXYCODONE HYDROCHLORIDE
     Indication: Muscle spasms
     Dosage: 15 MILLIGRAM, QD
     Route: 048
     Dates: start: 20231024, end: 20231101
  23. TRIAMCINOLONE [Concomitant]
     Active Substance: TRIAMCINOLONE
     Indication: Rash papular
     Dosage: 0.1 PERCENT, BID
     Route: 061
     Dates: start: 20231025
  24. CLARITIN [Concomitant]
     Active Substance: LORATADINE
     Indication: Prophylaxis
     Dosage: 10 MILLIGRAM, QD
     Route: 048
     Dates: start: 20231027, end: 20231031
  25. FILGRASTIM [Concomitant]
     Active Substance: FILGRASTIM
     Indication: Haematopoietic stem cell mobilisation
     Dosage: 900 MILLIGRAM, QD
     Route: 058
     Dates: start: 20231027, end: 20231031
  26. IMODIUM [Concomitant]
     Active Substance: LOPERAMIDE HYDROCHLORIDE
     Indication: Antidiarrhoeal supportive care
     Dosage: 2 MILLIGRAM
     Route: 048
     Dates: start: 20231030, end: 20231030
  27. PLERIXAFOR [Concomitant]
     Active Substance: PLERIXAFOR
     Indication: Haematopoietic stem cell mobilisation
     Dosage: 20 MILLIGRAM
     Route: 058
     Dates: start: 20231030, end: 20231030

REACTIONS (3)
  - Peripheral sensory neuropathy [Recovering/Resolving]
  - Chronic inflammatory demyelinating polyradiculoneuropathy [Not Recovered/Not Resolved]
  - Bone pain [Recovered/Resolved]

NARRATIVE: CASE EVENT DATE: 20231101
